FAERS Safety Report 24962288 (Version 1)
Quarter: 2025Q1

REPORT INFORMATION
  Report Type: Spontaneous
  Country: US (occurrence: US)
  Receive Date: 20250212
  Receipt Date: 20250212
  Transmission Date: 20250408
  Serious: No
  Sender: PFIZER
  Company Number: US-PFIZER INC-PV202500016094

PATIENT
  Age: 65 Year

DRUGS (1)
  1. ESTRADIOL [Suspect]
     Active Substance: ESTRADIOL
     Indication: Kidney infection

REACTIONS (3)
  - Hunger [Unknown]
  - Weight increased [Unknown]
  - Off label use [Unknown]
